FAERS Safety Report 19257612 (Version 1)
Quarter: 2021Q2

REPORT INFORMATION
  Report Type: Spontaneous
  Country: JP (occurrence: JP)
  Receive Date: 20210514
  Receipt Date: 20210514
  Transmission Date: 20210717
  Serious: Yes (Other)
  Sender: FDA-Public Use
  Company Number: JP-TEVA-2021-JP-1902542

PATIENT
  Age: 64 Year

DRUGS (1)
  1. FILGRASTIM BS INJ. 75MCG SYRINGE [Suspect]
     Active Substance: FILGRASTIM
     Indication: MYELODYSPLASTIC SYNDROME
     Route: 065

REACTIONS (1)
  - Haemorrhage subcutaneous [Recovering/Resolving]
